FAERS Safety Report 4553793-7 (Version None)
Quarter: 2004Q4

REPORT INFORMATION
  Report Type: 
  Country: None (occurrence: None)
  Receive Date: 20041227
  Receipt Date: 20041101
  Transmission Date: 20050328
  Serious: No
  Sender: FDA-Public Use
  Company Number: 04P-163-0279425-00

PATIENT
  Age: 56 Year
  Sex: Female
  Weight: 95 kg

DRUGS (6)
  1. HUMIRA [Suspect]
     Indication: RHEUMATOID ARTHRITIS
     Dosage: 40 MG, SUBCUTANEOUS
     Route: 058
     Dates: start: 20040301
  2. CELECOXIB [Concomitant]
  3. SULFASALAZINE [Concomitant]
  4. ESTRATEST H.S. [Concomitant]
  5. FOLIC ACID [Concomitant]
  6. MULTIVITAMIN [Concomitant]

REACTIONS (1)
  - NAIL DISCOLOURATION [None]
